FAERS Safety Report 10817655 (Version 1)
Quarter: 2015Q1

REPORT INFORMATION
  Report Type: Report from Study
  Country: US (occurrence: US)
  Receive Date: 20150218
  Receipt Date: 20150218
  Transmission Date: 20150721
  Serious: No
  Sender: FDA-Public Use
  Company Number: US-ABBVIE-14K-163-1287500-00

PATIENT
  Sex: Female

DRUGS (3)
  1. HUMIRA [Suspect]
     Active Substance: ADALIMUMAB
     Indication: PSORIASIS
     Dates: start: 20140824, end: 20140824
  2. HUMIRA [Suspect]
     Active Substance: ADALIMUMAB
     Dates: start: 20140831, end: 20140831
  3. HUMIRA [Suspect]
     Active Substance: ADALIMUMAB
     Dates: start: 20140914

REACTIONS (4)
  - Injection site papule [Recovered/Resolved]
  - Injection site nodule [Recovered/Resolved]
  - Injection site swelling [Recovered/Resolved]
  - Injection site pruritus [Recovered/Resolved]

NARRATIVE: CASE EVENT DATE: 2014
